FAERS Safety Report 6577816-9 (Version None)
Quarter: 2010Q1

REPORT INFORMATION
  Report Type: 
  Country: None (occurrence: None)
  Receive Date: 20100211
  Receipt Date: 20100203
  Transmission Date: 20100710
  Serious: Yes (Death)
  Sender: FDA-Public Use
  Company Number: US-ROCHE-679916

PATIENT
  Sex: Male

DRUGS (1)
  1. MYCOPHENOLATE MOFETIL [Suspect]
     Dosage: LAST DOSE OF MEDICATION TAKEN ON 30 OCTOBER 2009
     Route: 065
     Dates: start: 20030101

REACTIONS (2)
  - ARRHYTHMIA [None]
  - CARDIAC ARREST [None]
